FAERS Safety Report 25062909 (Version 2)
Quarter: 2025Q1

REPORT INFORMATION
  Report Type: Spontaneous
  Country: US (occurrence: US)
  Receive Date: 20250311
  Receipt Date: 20250325
  Transmission Date: 20250408
  Serious: No
  Sender: PFIZER
  Company Number: US-PFIZER INC-202500053072

PATIENT
  Age: 70 Year
  Sex: Female

DRUGS (1)
  1. XELJANZ XR [Suspect]
     Active Substance: TOFACITINIB CITRATE
     Dosage: 1 TABLET DAILY FOR 90 DAYS
     Route: 048

REACTIONS (3)
  - Hyperkeratosis [Unknown]
  - Pain in extremity [Unknown]
  - Arthralgia [Unknown]
